FAERS Safety Report 7755688-4 (Version None)
Quarter: 2011Q3

REPORT INFORMATION
  Report Type: 
  Country: None (occurrence: None)
  Receive Date: 20110914
  Receipt Date: 20110831
  Transmission Date: 20111222
  Serious: Yes (Hospitalization)
  Sender: FDA-Public Use
  Company Number: 1000023166

PATIENT
  Age: 82 Year
  Sex: Female

DRUGS (3)
  1. MEMANTINE [Suspect]
     Indication: DEMENTIA ALZHEIMER'S TYPE
     Dosage: 5 MG (5 MG,1 IN 1 D),ORAL
     Route: 048
     Dates: start: 20110804, end: 20110801
  2. ARICEPT [Concomitant]
  3. RIZE (CLOTIAZEPAM) [Concomitant]

REACTIONS (1)
  - RESPIRATORY FAILURE [None]
